FAERS Safety Report 4660458-X (Version None)
Quarter: 2005Q2

REPORT INFORMATION
  Report Type: 
  Country: None (occurrence: None)
  Receive Date: 20050512
  Receipt Date: 20041203
  Transmission Date: 20051028
  Serious: Yes (Other)
  Sender: FDA-Public Use
  Company Number: GB-GLAXOSMITHKLINE-B0359810A

PATIENT
  Sex: Male

DRUGS (2)
  1. PAROXETINE HCL [Suspect]
     Indication: POST-TRAUMATIC STRESS DISORDER
     Route: 065
     Dates: start: 19980101, end: 20040401
  2. PAROXETINE HCL [Suspect]
     Route: 065

REACTIONS (2)
  - AGGRESSION [None]
  - ILL-DEFINED DISORDER [None]
